FAERS Safety Report 7007896-8 (Version None)
Quarter: 2010Q3

REPORT INFORMATION
  Report Type: 
  Country: None (occurrence: None)
  Receive Date: 20100922
  Receipt Date: 20100917
  Transmission Date: 20110219
  Serious: Yes (Life-Threatening, Hospitalization, Disabling, Other)
  Sender: FDA-Public Use
  Company Number: DE-GILEAD-2010-0031067

PATIENT
  Sex: Male
  Weight: 60 kg

DRUGS (8)
  1. TRUVADA [Suspect]
     Indication: HIV INFECTION
     Route: 048
     Dates: start: 20100514, end: 20100805
  2. METFORMIN [Suspect]
     Indication: DIABETES MELLITUS
     Route: 048
  3. PREZISTA [Concomitant]
     Indication: HIV INFECTION
     Route: 048
     Dates: start: 20100514, end: 20100805
  4. NORVIR [Concomitant]
     Indication: HIV INFECTION
     Route: 048
     Dates: start: 20100514, end: 20100805
  5. METOPROLOL SUCCINATE [Concomitant]
     Route: 048
  6. LEVOTHYROXINE SODIUM [Concomitant]
     Route: 048
  7. OMEPRAZOLE [Concomitant]
     Route: 048
  8. SERTRALIN [Concomitant]
     Route: 048

REACTIONS (5)
  - ACIDOSIS [None]
  - DIARRHOEA [None]
  - GAIT DISTURBANCE [None]
  - MEMORY IMPAIRMENT [None]
  - RENAL FAILURE ACUTE [None]
